FAERS Safety Report 4647189-7 (Version None)
Quarter: 2005Q2

REPORT INFORMATION
  Report Type: 
  Country: None (occurrence: None)
  Receive Date: 20050426
  Receipt Date: 20050413
  Transmission Date: 20051028
  Serious: Yes (Hospitalization, Other)
  Sender: FDA-Public Use
  Company Number: HQWYE034015APR05

PATIENT
  Age: 40 Year
  Sex: Female

DRUGS (9)
  1. RAPAMUNE [Suspect]
     Indication: PANCREAS ISLET CELL TRANSPLANT
     Dosage: SEE IMAGE
     Route: 048
     Dates: start: 20031225
  2. RAPAMUNE [Suspect]
     Indication: PANCREAS ISLET CELL TRANSPLANT
     Dosage: SEE IMAGE
     Route: 048
     Dates: start: 20040101
  3. FOSINOPRIL SODIUM [Concomitant]
  4. LEVOTHYROXINE SODIUM [Concomitant]
  5. MULTIVITAMINS, PLAIN (MULTIVITAMINS, PLAIN) [Concomitant]
  6. INSULIN [Concomitant]
  7. TACROLIMUS (TACROLIMUS) [Concomitant]
  8. TACROLIMUS (TACROLIMUS) [Concomitant]
  9. MYCOPHENOLATE MOFETIL (MYCOPHENOLATE MOFETIL) [Concomitant]

REACTIONS (11)
  - ABDOMINAL DISCOMFORT [None]
  - ANAEMIA [None]
  - ASTHENIA [None]
  - DECREASED APPETITE [None]
  - DIAPHRAGMATIC DISORDER [None]
  - DIARRHOEA [None]
  - FAECAL OCCULT BLOOD POSITIVE [None]
  - LEUKOPENIA [None]
  - MUCOSAL ULCERATION [None]
  - MUSCLE SPASMS [None]
  - SMALL INTESTINE ULCER [None]
